FAERS Safety Report 9231796 (Version 1)
Quarter: 2013Q2

REPORT INFORMATION
  Report Type: Spontaneous
  Country: SK (occurrence: SK)
  Receive Date: 20130415
  Receipt Date: 20130415
  Transmission Date: 20140414
  Serious: Yes (Death, Hospitalization)
  Sender: FDA-Public Use
  Company Number: SK-TEVA-396756ISR

PATIENT
  Age: 71 Year
  Sex: Female

DRUGS (3)
  1. FLUCONAZOLE [Suspect]
     Indication: PNEUMONIA
     Dosage: 200 MILLIGRAM DAILY;
     Route: 042
     Dates: start: 20130214, end: 20130301
  2. CLINDAMYCIN [Suspect]
     Indication: PNEUMONIA
     Dosage: 1800 MILLIGRAM DAILY;
     Route: 042
     Dates: start: 20130214, end: 20130301
  3. FORTUM [Suspect]
     Indication: PNEUMONIA
     Dosage: 6 GRAM DAILY;
     Route: 042
     Dates: start: 20130214, end: 20130301

REACTIONS (2)
  - Diarrhoea [Unknown]
  - Cardiac failure [Fatal]
